FAERS Safety Report 16104709 (Version 1)
Quarter: 2019Q1

REPORT INFORMATION
  Report Type: Spontaneous
  Country: US (occurrence: US)
  Receive Date: 20190219
  Receipt Date: 20190219
  Transmission Date: 20190418
  Serious: Yes (Death)
  Sender: FDA-Public Use
  Company Number: None

PATIENT
  Age: 20 Year
  Sex: Male

DRUGS (1)
  1. OPSUMIT [Suspect]
     Active Substance: MACITENTAN
     Indication: COR PULMONALE CHRONIC
     Route: 048
     Dates: start: 20170328, end: 20190218

REACTIONS (4)
  - Cardiac arrest [None]
  - Cerebral haemorrhage [None]
  - Subarachnoid haemorrhage [None]
  - Pulmonary oedema [None]

NARRATIVE: CASE EVENT DATE: 20190218
